FAERS Safety Report 5858423-X (Version None)
Quarter: 2008Q3

REPORT INFORMATION
  Report Type: 
  Country: None (occurrence: None)
  Receive Date: 20080826
  Receipt Date: 20080821
  Transmission Date: 20090109
  Serious: Yes (Other)
  Sender: FDA-Public Use
  Company Number: JP-ABBOTT-08P-087-0443879-00

PATIENT
  Age: 83 Year
  Sex: Male

DRUGS (3)
  1. LEUPROLIDE ACETATE [Suspect]
     Indication: PROSTATE CANCER STAGE II
     Route: 058
     Dates: start: 20070731
  2. LEUPROLIDE ACETATE [Suspect]
     Dates: start: 20060413, end: 20060702
  3. MAGNESIUM OXIDE [Concomitant]
     Indication: CONSTIPATION
     Route: 048

REACTIONS (3)
  - ANAEMIA [None]
  - GASTROENTERITIS RADIATION [None]
  - HAEMORRHAGE [None]
